FAERS Safety Report 13449129 (Version 1)
Quarter: 2017Q2

REPORT INFORMATION
  Report Type: Spontaneous
  Country: US (occurrence: US)
  Receive Date: 20170417
  Receipt Date: 20170417
  Transmission Date: 20170830
  Serious: No
  Sender: FDA-Public Use
  Company Number: US-CORCEPT THERAPEUTICS INC.-US-2017CRT000110

PATIENT

DRUGS (2)
  1. KORLYM [Suspect]
     Active Substance: MIFEPRISTONE
     Indication: DIABETES MELLITUS
  2. KORLYM [Suspect]
     Active Substance: MIFEPRISTONE
     Indication: CORTISOL INCREASED
     Dosage: UNK
     Dates: end: 2017

REACTIONS (2)
  - Insomnia [Unknown]
  - Libido decreased [Unknown]
